FAERS Safety Report 9971402 (Version 1)
Quarter: 2014Q1

REPORT INFORMATION
  Report Type: Spontaneous
  Country: US (occurrence: US)
  Receive Date: 20140306
  Receipt Date: 20140306
  Transmission Date: 20141002
  Serious: No
  Sender: FDA-Public Use
  Company Number: US-ABBVIE-13P-163-1151936-00

PATIENT
  Sex: Female

DRUGS (2)
  1. HUMIRA [Suspect]
     Indication: CROHN^S DISEASE
     Dates: start: 2013
  2. UNKNOWN THYROID MEDICATION [Concomitant]
     Indication: HYPOTHYROIDISM

REACTIONS (1)
  - Weight increased [Not Recovered/Not Resolved]
